FAERS Safety Report 15698745 (Version 1)
Quarter: 2018Q4

REPORT INFORMATION
  Report Type: Report from Study
  Country: US (occurrence: US)
  Receive Date: 20181207
  Receipt Date: 20181207
  Transmission Date: 20190205
  Serious: Yes (Other)
  Sender: FDA-Public Use
  Company Number: US-ASTELLAS-2018US052005

PATIENT
  Sex: Female

DRUGS (1)
  1. MIRABEGRON [Suspect]
     Active Substance: MIRABEGRON
     Indication: PRODUCT USED FOR UNKNOWN INDICATION
     Dosage: UNK UNK, UNKNOWN FREQ.
     Route: 065

REACTIONS (7)
  - Sleep apnoea syndrome [Unknown]
  - Hypoacusis [Unknown]
  - Amnesia [Unknown]
  - Balance disorder [Unknown]
  - Fall [Unknown]
  - Depressed mood [Unknown]
  - Dry eye [Unknown]
